FAERS Safety Report 8079821-2 (Version None)
Quarter: 2012Q1

REPORT INFORMATION
  Report Type: 
  Country: None (occurrence: None)
  Receive Date: 20120128
  Receipt Date: 20110829
  Transmission Date: 20120608
  Serious: No
  Sender: FDA-Public Use
  Company Number: US-ABBOTT-11P-163-0850793-00

PATIENT
  Sex: Male

DRUGS (3)
  1. PRILOSEC [Concomitant]
     Indication: DYSPEPSIA
  2. HUMIRA [Suspect]
     Indication: ANKYLOSING SPONDYLITIS
     Dates: end: 20100101
  3. ACYCLOVIR [Concomitant]
     Indication: LABYRINTHITIS
     Dosage: FOR 6 MONTHS BID

REACTIONS (6)
  - VISION BLURRED [None]
  - PRURITUS GENERALISED [None]
  - MOTION SICKNESS [None]
  - AORTIC DILATATION [None]
  - DIZZINESS [None]
  - NAUSEA [None]
